FAERS Safety Report 8367729-4 (Version None)
Quarter: 2012Q2

REPORT INFORMATION
  Report Type: 
  Country: None (occurrence: None)
  Receive Date: 20120517
  Receipt Date: 20120503
  Transmission Date: 20120825
  Serious: Yes (Other)
  Sender: FDA-Public Use
  Company Number: CZ-GLAXOSMITHKLINE-A0976830A

PATIENT
  Age: 45 Year
  Sex: Female

DRUGS (3)
  1. LAPATINIB [Suspect]
     Indication: BREAST CANCER
     Dosage: 1250MG PER DAY
     Route: 065
  2. CAPECITABINE [Concomitant]
     Indication: BREAST CANCER
     Dosage: 2500MGM2 PER DAY
     Route: 065
  3. BISPHOSPHONATES (NOS) [Concomitant]
     Indication: BREAST CANCER
     Route: 042

REACTIONS (3)
  - POLYNEUROPATHY [None]
  - GASTROINTESTINAL DISORDER [None]
  - PALMAR-PLANTAR ERYTHRODYSAESTHESIA SYNDROME [None]
